FAERS Safety Report 10164427 (Version 2)
Quarter: 2014Q2

REPORT INFORMATION
  Report Type: Spontaneous
  Country: US (occurrence: US)
  Receive Date: 20140510
  Receipt Date: 20140510
  Transmission Date: 20141212
  Serious: No
  Sender: FDA-Public Use
  Company Number: US-BRISTOL-MYERS SQUIBB COMPANY-18092171

PATIENT
  Age: 70 Year
  Sex: Male
  Weight: 87.53 kg

DRUGS (7)
  1. BYETTA PEN DISPOSABLE [Suspect]
     Indication: TYPE 2 DIABETES MELLITUS
     Dosage: LOT:C158140A,EXP:APR2015
     Route: 058
     Dates: start: 2007
  2. EXENATIDE 10MCG PEN, DISPOSABLE DEVICE [Concomitant]
  3. METFORMIN [Concomitant]
     Indication: TYPE 2 DIABETES MELLITUS
  4. POTASSIUM [Concomitant]
     Indication: BLOOD PRESSURE
  5. HYDROCHLOROTHIAZIDE [Concomitant]
     Indication: BLOOD PRESSURE
  6. AMLODIPINE [Concomitant]
     Indication: BLOOD PRESSURE
  7. LASIX [Concomitant]
     Indication: PAIN

REACTIONS (3)
  - Weight decreased [Unknown]
  - Blood sodium decreased [Recovered/Resolved]
  - Blood potassium decreased [Recovered/Resolved]
